FAERS Safety Report 5579032-6 (Version None)
Quarter: 2007Q4

REPORT INFORMATION
  Report Type: 
  Country: None (occurrence: None)
  Receive Date: 20071227
  Receipt Date: 20071218
  Transmission Date: 20080405
  Serious: Yes (Hospitalization)
  Sender: FDA-Public Use
  Company Number: 07H-163-0313615-00

PATIENT
  Sex: Female

DRUGS (1)
  1. KETOROLAC TROMETHAMINE [Suspect]
     Indication: DRUG USE FOR UNKNOWN INDICATION
     Dosage: 60 MG, ONCE, INTRAMUSCULAR
     Route: 030
     Dates: start: 20071018, end: 20071018

REACTIONS (1)
  - INJECTION SITE ABSCESS [None]
